FAERS Safety Report 10562357 (Version 2)
Quarter: 2014Q4

REPORT INFORMATION
  Report Type: Spontaneous
  Country: MY (occurrence: MY)
  Receive Date: 20141104
  Receipt Date: 20141104
  Transmission Date: 20150529
  Serious: Yes (Other)
  Sender: FDA-Public Use
  Company Number: PHHY2014MY138351

PATIENT
  Age: 30 Year
  Sex: Female
  Weight: 46 kg

DRUGS (1)
  1. EXJADE [Suspect]
     Active Substance: DEFERASIROX
     Indication: IRON OVERLOAD
     Dosage: 500 MG, QD
     Route: 065
     Dates: start: 20141009

REACTIONS (5)
  - Toxic epidermal necrolysis [Unknown]
  - Skin lesion [Unknown]
  - Stevens-Johnson syndrome [Unknown]
  - Rash [Unknown]
  - Mouth ulceration [Unknown]

NARRATIVE: CASE EVENT DATE: 20141018
